FAERS Safety Report 23639651 (Version 1)
Quarter: 2024Q1

REPORT INFORMATION
  Report Type: Other
  Country: US (occurrence: None)
  Receive Date: 20240316
  Receipt Date: 20240316
  Transmission Date: 20240409
  Serious: No
  Sender: FDA-Public Use
  Company Number: US-ROCHE-3290923

PATIENT
  Age: 56 Year
  Sex: Male
  Weight: 81.646 kg

DRUGS (28)
  1. OCREVUS [Suspect]
     Active Substance: OCRELIZUMAB
     Indication: Relapsing-remitting multiple sclerosis
     Dosage: INFUSE 300MG INTRAVENOUSLY ON DAYS 1 AND 15 THEN INFUSE 600MG INTRAVENOUSLY EVERY 6 MONTHS?NEXT INFU
     Route: 042
  2. DEXTROAMPHETAMINE [Concomitant]
     Active Substance: DEXTROAMPHETAMINE
     Route: 048
  3. TAMSULOSIN [Concomitant]
     Active Substance: TAMSULOSIN
     Indication: Multiple sclerosis
     Route: 048
  4. SILDENAFIL [Concomitant]
     Active Substance: SILDENAFIL
     Route: 048
  5. ERGOCALCIFEROL [Concomitant]
     Active Substance: ERGOCALCIFEROL
     Dosage: TAKE 1 CAPSULE BY MOUTH 1 TIME A WEEK
     Route: 048
  6. ASPIRIN [Concomitant]
     Active Substance: ASPIRIN
  7. ALBUTEROL [Concomitant]
     Active Substance: ALBUTEROL
  8. ATENOLOL [Concomitant]
     Active Substance: ATENOLOL
  9. BIOTIN [Concomitant]
     Active Substance: BIOTIN
  10. CETIRIZINE HYDROCHLORIDE [Concomitant]
     Active Substance: CETIRIZINE HYDROCHLORIDE
  11. DIETARY SUPPLEMENT [Concomitant]
     Active Substance: DIETARY SUPPLEMENT
  12. DENOSUMAB [Concomitant]
     Active Substance: DENOSUMAB
  13. DOXYCYCLINE [Concomitant]
     Active Substance: DOXYCYCLINE
  14. DIFLUCAN [Concomitant]
     Active Substance: FLUCONAZOLE
  15. FLONASE [Concomitant]
     Active Substance: FLUTICASONE PROPIONATE
  16. LEVOTHYROXINE [Concomitant]
     Active Substance: LEVOTHYROXINE\LEVOTHYROXINE SODIUM
  17. MEMANTINE [Concomitant]
     Active Substance: MEMANTINE
  18. SINGULAIR [Concomitant]
     Active Substance: MONTELUKAST SODIUM
  19. NORTRIPTYLINE [Concomitant]
     Active Substance: NORTRIPTYLINE
  20. OMEPRAZOLE [Concomitant]
     Active Substance: OMEPRAZOLE
  21. ROSUVASTATIN [Concomitant]
     Active Substance: ROSUVASTATIN
  22. TIZANIDINE [Concomitant]
     Active Substance: TIZANIDINE
  23. TRAMADOL [Concomitant]
     Active Substance: TRAMADOL\TRAMADOL HYDROCHLORIDE
  24. UBRELVY [Concomitant]
     Active Substance: UBROGEPANT
  25. AMPYRA [Concomitant]
     Active Substance: DALFAMPRIDINE
     Route: 048
  26. FLOMAX CAPSULE [Concomitant]
     Route: 048
  27. GABAPENTIN [Concomitant]
     Active Substance: GABAPENTIN
     Route: 048
  28. ADDERALL [Concomitant]
     Active Substance: AMPHETAMINE ASPARTATE\AMPHETAMINE SULFATE\DEXTROAMPHETAMINE SACCHARATE\DEXTROAMPHETAMINE SULFATE
     Route: 048

REACTIONS (5)
  - Blood thyroid stimulating hormone decreased [Unknown]
  - Thyroxine increased [Unknown]
  - Influenza A virus test positive [Unknown]
  - Neck pain [Unknown]
  - Neurogenic bladder [Unknown]
